FAERS Safety Report 8571246-6 (Version None)
Quarter: 2012Q3

REPORT INFORMATION
  Report Type: 
  Country: None (occurrence: None)
  Receive Date: 20120730
  Receipt Date: 20120730
  Transmission Date: 20120928
  Serious: Yes (Hospitalization)
  Sender: FDA-Public Use
  Company Number: None

PATIENT
  Age: 89 Year
  Sex: Male
  Weight: 59.2 kg

DRUGS (1)
  1. CILOSTAZOL [Suspect]
     Dosage: 100 MG  BID  PO
     Route: 048
     Dates: start: 20120221, end: 20120224

REACTIONS (5)
  - NAUSEA [None]
  - VOMITING [None]
  - BLOOD CREATININE INCREASED [None]
  - RENAL FAILURE ACUTE [None]
  - ABDOMINAL DISCOMFORT [None]
